FAERS Safety Report 9107331 (Version 1)
Quarter: 2013Q1

REPORT INFORMATION
  Report Type: Spontaneous
  Country: ES (occurrence: ES)
  Receive Date: 20130221
  Receipt Date: 20130221
  Transmission Date: 20140127
  Serious: Yes (Other)
  Sender: FDA-Public Use
  Company Number: ES-JNJFOC-20130211191

PATIENT
  Age: 42 Year
  Sex: Male

DRUGS (2)
  1. FENTANYL [Suspect]
     Indication: PAIN
     Route: 062
  2. MORPHINE [Suspect]
     Indication: PAIN
     Route: 048

REACTIONS (2)
  - Neurotoxicity [Recovered/Resolved]
  - Pain [Recovering/Resolving]
